FAERS Safety Report 5478484-X (Version None)
Quarter: 2007Q4

REPORT INFORMATION
  Report Type: 
  Country: None (occurrence: None)
  Receive Date: 20071005
  Receipt Date: 20070925
  Transmission Date: 20080405
  Serious: Yes (Hospitalization)
  Sender: FDA-Public Use
  Company Number: GB-ROCHE-521467

PATIENT
  Age: 37 Year
  Sex: Female
  Weight: 55.6 kg

DRUGS (4)
  1. CAPECITABINE [Suspect]
     Indication: COLON CANCER
     Dosage: RECEIVED FOR 14 DAYS. DOSE REPORTED AS 3950. MISSED LAST THREE DOSES OF CYCLE 4.
     Route: 048
     Dates: start: 20070630, end: 20070913
  2. CAPECITABINE [Suspect]
     Dosage: STARTED CYCLE 5. THE PATIENT RECEIVED 4000 MG ORAL CAPECITABINE ON UNSPECIFIED DATE.
     Route: 048
     Dates: start: 20070921
  3. PYRIDOXINE HCL [Concomitant]
     Route: 048
     Dates: start: 20070721
  4. CYCLIZINE [Concomitant]
     Indication: NAUSEA
     Route: 048
     Dates: start: 20070721

REACTIONS (2)
  - DIARRHOEA [None]
  - SMALL BOWEL ANGIOEDEMA [None]
